FAERS Safety Report 4926384-3 (Version None)
Quarter: 2006Q1

REPORT INFORMATION
  Report Type: 
  Country: None (occurrence: None)
  Receive Date: 20060228
  Receipt Date: 20051109
  Transmission Date: 20060701
  Serious: No
  Sender: FDA-Public Use
  Company Number: US-GLAXOSMITHKLINE-A0581617A

PATIENT
  Age: 39 Year
  Sex: Female

DRUGS (5)
  1. LAMICTAL [Suspect]
     Indication: DEPRESSION
     Dosage: 200MG PER DAY
     Route: 048
     Dates: end: 20051109
  2. MACROBID [Concomitant]
  3. ACETAMINOPHEN [Concomitant]
  4. XANAX [Concomitant]
  5. UNKNOWN MEDICATION [Concomitant]

REACTIONS (2)
  - DYSGEUSIA [None]
  - RASH [None]
